FAERS Safety Report 19294911 (Version 1)
Quarter: 2021Q2

REPORT INFORMATION
  Report Type: Spontaneous
  Country: IT (occurrence: IT)
  Receive Date: 20210524
  Receipt Date: 20210524
  Transmission Date: 20210717
  Serious: Yes (Other)
  Sender: FDA-Public Use
  Company Number: IT-AUROBINDO-AUR-APL-2021-020570

PATIENT
  Age: 71 Year
  Sex: Male

DRUGS (4)
  1. ENALAPRIL [Suspect]
     Active Substance: ENALAPRIL
     Indication: HYPERTENSION
     Dosage: 1 UNK, ONCE A DAY
     Route: 065
  2. SITAGLIPTIN/METFORMIN HYDROCHLORIDE [Suspect]
     Active Substance: METFORMIN HYDROCHLORIDE\SITAGLIPTIN
     Indication: HYPOGLYCAEMIA
     Dosage: 1 UNK, ONCE A DAY
     Route: 065
  3. SIMVASTATIN. [Suspect]
     Active Substance: SIMVASTATIN
     Indication: PRODUCT USED FOR UNKNOWN INDICATION
     Dosage: 1 UNK, ONCE A DAY
     Route: 065
  4. METFORMIN [Suspect]
     Active Substance: METFORMIN HYDROCHLORIDE
     Indication: TYPE 2 DIABETES MELLITUS
     Dosage: 2 UNK, ONCE A DAY
     Route: 065

REACTIONS (6)
  - Weight decreased [Unknown]
  - Hepatomegaly [Unknown]
  - Haemoglobin abnormal [Unknown]
  - Non-alcoholic steatohepatitis [Unknown]
  - Hepatic steatosis [Unknown]
  - Hepatic enzyme decreased [Unknown]
